FAERS Safety Report 4398590-0 (Version None)
Quarter: 2004Q3

REPORT INFORMATION
  Report Type: 
  Country: None (occurrence: None)
  Receive Date: 20040712
  Receipt Date: 20040628
  Transmission Date: 20050211
  Serious: Yes (Disabling)
  Sender: FDA-Public Use
  Company Number: S04-FRA-02847-01

PATIENT
  Age: 93 Year
  Sex: Female

DRUGS (9)
  1. MEMANTINE HCL [Suspect]
     Indication: DEMENTIA ALZHEIMER'S TYPE
     Dosage: 5 MG QD PO
     Route: 048
     Dates: start: 20040530
  2. MEMANTINE HCL [Suspect]
     Indication: DEMENTIA ALZHEIMER'S TYPE
     Dosage: 2. 5MG QD PO
     Route: 048
  3. MEMANTINE HCL [Suspect]
     Indication: DEMENTIA ALZHEIMER'S TYPE
  4. ARICEPT [Suspect]
     Indication: DEMENTIA ALZHEIMER'S TYPE
     Dosage: 10 MG QD PO
     Route: 048
  5. FUROSEMIDE [Concomitant]
  6. TRIVASTAL (PIRIBEDIL) [Concomitant]
  7. ENALAPRIL MALEATE [Concomitant]
  8. DIGOXIN [Concomitant]
  9. LOVENOX [Concomitant]

REACTIONS (4)
  - APATHY [None]
  - CONFUSIONAL STATE [None]
  - DEAFNESS [None]
  - HYPERSOMNIA [None]
